FAERS Safety Report 4584958-6 (Version None)
Quarter: 2005Q1

REPORT INFORMATION
  Report Type: 
  Country: None (occurrence: None)
  Receive Date: 20050214
  Receipt Date: 20050201
  Transmission Date: 20050727
  Serious: Yes (Death, Other)
  Sender: FDA-Public Use
  Company Number: USA-2004-0017151

PATIENT
  Age: 76 Year
  Sex: Male

DRUGS (4)
  1. SENOKOT [Suspect]
     Indication: CONSTIPATION
     Dosage: BID
     Dates: end: 20041101
  2. INSULIN [Concomitant]
  3. GLUCOPHAGE [Concomitant]
  4. GLUBURIDE (GLIBENCLAMIDE) [Concomitant]

REACTIONS (3)
  - CHROMATURIA [None]
  - PANCREATIC CARCINOMA [None]
  - SKIN DISCOLOURATION [None]
